FAERS Safety Report 4358488-0 (Version None)
Quarter: 2004Q2

REPORT INFORMATION
  Report Type: 
  Country: None (occurrence: None)
  Receive Date: 20040514
  Receipt Date: 20040514
  Transmission Date: 20050107
  Serious: Yes (Other)
  Sender: FDA-Public Use
  Company Number: None

PATIENT
  Age: 22 Year
  Sex: Female
  Weight: 70.3075 kg

DRUGS (4)
  1. ZELNORM - NAVARTIS [Suspect]
     Indication: CONSTIPATION
     Dosage: 3MG QD AND 6 MG BID PO
     Route: 048
     Dates: start: 20041203, end: 20040106
  2. ZELNORM - NAVARTIS [Suspect]
     Indication: IRRITABLE BOWEL SYNDROME
     Dosage: 3MG QD AND 6 MG BID PO
     Route: 048
     Dates: start: 20041203, end: 20040106
  3. BIRTH CONTROL [Concomitant]
  4. LEVSIN PB [Concomitant]

REACTIONS (3)
  - ABNORMAL BEHAVIOUR [None]
  - AGGRESSION [None]
  - HYPOMANIA [None]
